FAERS Safety Report 10218012 (Version 1)
Quarter: 2014Q2

REPORT INFORMATION
  Report Type: Spontaneous
  Country: US (occurrence: US)
  Receive Date: 20140605
  Receipt Date: 20140605
  Transmission Date: 20141212
  Serious: No
  Sender: FDA-Public Use
  Company Number: US-BIOGENIDEC-2014BI046801

PATIENT
  Age: 38 Year
  Sex: Female

DRUGS (8)
  1. TECFIDERA [Suspect]
     Indication: MULTIPLE SCLEROSIS
     Route: 048
     Dates: start: 20140124, end: 20140130
  2. TECFIDERA [Suspect]
     Indication: MULTIPLE SCLEROSIS
     Route: 048
     Dates: start: 20140131
  3. BACLOFEN [Concomitant]
  4. NEXIUM [Concomitant]
  5. GABAPENTIN [Concomitant]
  6. PREMARIN [Concomitant]
  7. CYMBALTA [Concomitant]
  8. PREDNISONE [Concomitant]

REACTIONS (2)
  - Alopecia [Not Recovered/Not Resolved]
  - Multiple sclerosis relapse [Recovered/Resolved]
